FAERS Safety Report 13756393 (Version 1)
Quarter: 2017Q3

REPORT INFORMATION
  Report Type: Spontaneous
  Country: SE (occurrence: SE)
  Receive Date: 20170714
  Receipt Date: 20170714
  Transmission Date: 20171127
  Serious: Yes (Hospitalization)
  Sender: FDA-Public Use
  Company Number: SE-TEVA-785518ISR

PATIENT
  Age: 21 Year
  Sex: Female

DRUGS (4)
  1. THERALEN [Concomitant]
     Active Substance: TRIMEPRAZINE
  2. IPREN [Concomitant]
     Active Substance: IBUPROFEN
     Route: 048
  3. SERTRALINE [Suspect]
     Active Substance: SERTRALINE HYDROCHLORIDE
     Route: 065
  4. PROMETHAZINE [Concomitant]
     Active Substance: PROMETHAZINE\PROMETHAZINE HYDROCHLORIDE
     Route: 048

REACTIONS (2)
  - Toxicity to various agents [Unknown]
  - Intentional self-injury [Unknown]
